FAERS Safety Report 23320056 (Version 3)
Quarter: 2024Q4

REPORT INFORMATION
  Report Type: Report from Study
  Country: CO (occurrence: CO)
  Receive Date: 20231220
  Receipt Date: 20241016
  Transmission Date: 20250114
  Serious: Yes (Hospitalization)
  Sender: ROCHE
  Company Number: CO-002147023-NVSC2020CO271987

PATIENT
  Age: 13 Year
  Sex: Female
  Weight: 29.0 kg

DRUGS (9)
  1. XOLAIR [Suspect]
     Active Substance: OMALIZUMAB
     Indication: Asthma
     Dosage: 200 MG, Q2W (THAT WAS ONE OF 75 MG)
     Route: 058
     Dates: start: 2019, end: 20230525
  2. XOLAIR [Suspect]
     Active Substance: OMALIZUMAB
     Dosage: 225 MG, Q2W, APPROXIMATELY 1 YEAR AGO
     Route: 058
     Dates: start: 2020, end: 202306
  3. XOLAIR [Suspect]
     Active Substance: OMALIZUMAB
     Dosage: 225 MG, Q2W, APPROXIMATELY 1 YEAR AGO
     Route: 065
  4. XOLAIR [Suspect]
     Active Substance: OMALIZUMAB
     Dosage: 225 MG, Q2W, APPROXIMATELY 1 YEAR AGO
     Route: 058
  5. XOLAIR [Suspect]
     Active Substance: OMALIZUMAB
     Dosage: 225 MG, Q2W, APPROXIMATELY 1 YEAR AGO
     Route: 065
     Dates: start: 2021
  6. XOLAIR [Suspect]
     Active Substance: OMALIZUMAB
     Dosage: 225 MG, Q2W, APPROXIMATELY 1 YEAR AGO
     Route: 065
     Dates: start: 20240823, end: 20240823
  7. XOLAIR [Suspect]
     Active Substance: OMALIZUMAB
     Dosage: 225 MG, BIW (ONCE EVERY 2 WEEKS/ BIWEEKLY, 1 OF 150 MG AND 1 OF 75 MG)
     Route: 058
  8. MONTELUKAST [Suspect]
     Active Substance: MONTELUKAST
     Indication: Asthma
     Dosage: 5 MG, QD
     Route: 048
  9. FLUTICASONE [Concomitant]
     Active Substance: FLUTICASONE
     Indication: Asthma
     Dosage: 1 DOSAGE FORM PUFF, EVERY 12 HOURS

REACTIONS (9)
  - Asthmatic crisis [Not Recovered/Not Resolved]
  - Illness [Unknown]
  - Ovarian cyst [Unknown]
  - Ear infection [Unknown]
  - Asthma [Unknown]
  - Musculoskeletal chest pain [Unknown]
  - COVID-19 [Unknown]
  - Drug effect less than expected [Unknown]
  - Ill-defined disorder [Unknown]

NARRATIVE: CASE EVENT DATE: 20230601
